FAERS Safety Report 8038088-1 (Version None)
Quarter: 2012Q1

REPORT INFORMATION
  Report Type: 
  Country: None (occurrence: None)
  Receive Date: 20120111
  Receipt Date: 20120103
  Transmission Date: 20120608
  Serious: Yes (Hospitalization)
  Sender: FDA-Public Use
  Company Number: DE-TEVA-315926GER

PATIENT
  Age: 55 Year
  Sex: Male

DRUGS (4)
  1. CITALOPRAM [Concomitant]
     Dosage: 30 MILLIGRAM;
     Route: 048
  2. BACLOFEN [Concomitant]
     Indication: MUSCLE RELAXANT THERAPY
     Dosage: 20 MILLIGRAM;
     Route: 048
  3. DOXEPIN HYDROCHLORIDE [Concomitant]
     Indication: DEPRESSION
     Dosage: 25 MILLIGRAM;
     Route: 048
  4. COPAXONE [Suspect]
     Indication: SECONDARY PROGRESSIVE MULTIPLE SCLEROSIS
     Dates: start: 20110324

REACTIONS (4)
  - GAIT DISTURBANCE [None]
  - SENSORY DISTURBANCE [None]
  - FEELING ABNORMAL [None]
  - OFF LABEL USE [None]
